FAERS Safety Report 8816753 (Version 2)
Quarter: 2012Q4

REPORT INFORMATION
  Report Type: Spontaneous
  Country: US (occurrence: None)
  Receive Date: 20121001
  Receipt Date: 20121011
  Transmission Date: 20130627
  Serious: Yes (Hospitalization)
  Sender: FDA-Public Use
  Company Number: JPI-P-020918

PATIENT
  Age: 52 Year
  Sex: Female
  Weight: 63.5 kg

DRUGS (5)
  1. XYREM [Suspect]
     Indication: CATAPLEXY
     Dosage: 4.5 gm (2.25 gm, 2 in 1 D), Oral
     Dates: start: 20040411
  2. XYREM [Suspect]
     Indication: CATAPLEXY
     Route: 048
  3. XYREM [Suspect]
     Indication: CATAPLEXY
     Dosage: 9 gm (4.5 gm, 2 in 1 D), Oral
     Dates: start: 20120411, end: 20120824
  4. ATENOLOL [Concomitant]
  5. HEART MEDICATION [Concomitant]

REACTIONS (11)
  - Apnoea [None]
  - Retching [None]
  - Dizziness [None]
  - Feeling drunk [None]
  - Tremor [None]
  - Bruxism [None]
  - Loss of consciousness [None]
  - Feeling abnormal [None]
  - Weight decreased [None]
  - Loss of consciousness [None]
  - Starvation [None]
